FAERS Safety Report 5243049-1 (Version None)
Quarter: 2007Q1

REPORT INFORMATION
  Report Type: 
  Country: None (occurrence: None)
  Receive Date: 20070215
  Receipt Date: 20070129
  Transmission Date: 20070707
  Serious: Yes (Hospitalization)
  Sender: FDA-Public Use
  Company Number: 233425

PATIENT
  Age: 86 Year
  Sex: Female

DRUGS (17)
  1. RANIBIZUMAB (RANIBIZUMAB) PWDR + SOLVENT, INJECTION SOLN [Suspect]
     Indication: CHOROIDAL NEOVASCULARISATION
     Dosage: INTRAVITREAL
     Dates: start: 20060615
  2. ZOCOR [Concomitant]
  3. AMBIEN [Concomitant]
  4. ISORBID (ISOSORBIDE DINITRATE) [Concomitant]
  5. NITROQUICK (NITROGLYCERIN) [Concomitant]
  6. NORVASC [Concomitant]
  7. ADVAIR DISKUS 100/50 [Concomitant]
  8. FLEXERIL [Concomitant]
  9. CITALOPRAM HBR (CITALOPRAM) [Concomitant]
  10. PRILOSEC [Concomitant]
  11. TOPROL-XL [Concomitant]
  12. FLUTICASONE (FLUTICASONE PROPIONATE) [Concomitant]
  13. MULTI-VITAMINS [Concomitant]
  14. GARLIC (GARLIC) [Concomitant]
  15. ASPIRIN [Concomitant]
  16. VICODIN [Concomitant]
  17. TYLENOL (CAPLET) [Concomitant]

REACTIONS (3)
  - MYOCARDIAL INFARCTION [None]
  - PNEUMONIA [None]
  - VENTRICULAR EXTRASYSTOLES [None]
